FAERS Safety Report 22161691 (Version 1)
Quarter: 2023Q1

REPORT INFORMATION
  Report Type: Spontaneous
  Country: US (occurrence: US)
  Receive Date: 20230331
  Receipt Date: 20230331
  Transmission Date: 20230418
  Serious: No
  Sender: FDA-Public Use
  Company Number: US-BAYER-2023A039944

PATIENT

DRUGS (1)
  1. GADAVIST [Suspect]
     Active Substance: GADOBUTROL
     Indication: Magnetic resonance imaging
     Dosage: 11 ML, ONCE
     Route: 042
     Dates: start: 20230227, end: 20230227

REACTIONS (2)
  - Injection site pruritus [None]
  - Injection site urticaria [None]
